FAERS Safety Report 4632734-8 (Version None)
Quarter: 2005Q2

REPORT INFORMATION
  Report Type: 
  Country: None (occurrence: None)
  Receive Date: 20050412
  Receipt Date: 20050225
  Transmission Date: 20051028
  Serious: Yes (Death)
  Sender: FDA-Public Use
  Company Number: GB-BOEHRINGER INGELHEIM PHARMACEUTICALS, INC.-2005-UK-00330UK

PATIENT
  Sex: Male

DRUGS (7)
  1. COMBIVENT [Suspect]
     Route: 055
  2. DIDRONEL [Concomitant]
  3. VENTOLIN [Concomitant]
     Route: 055
  4. SERETIDE 500 INHALER [Concomitant]
     Route: 055
  5. PREDNISOLONE [Concomitant]
  6. UNIPHYLLIN CONTINUS [Concomitant]
  7. FRUSEMIDE [Concomitant]

REACTIONS (1)
  - CHRONIC OBSTRUCTIVE PULMONARY DISEASE [None]
